FAERS Safety Report 4626000-4 (Version None)
Quarter: 2005Q1

REPORT INFORMATION
  Report Type: 
  Country: None (occurrence: None)
  Receive Date: 20050330
  Receipt Date: 20050310
  Transmission Date: 20050727
  Serious: Yes (Other)
  Sender: FDA-Public Use
  Company Number: USA020312760

PATIENT
  Age: 83 Year
  Sex: Female

DRUGS (3)
  1. HUMULIN N [Suspect]
     Indication: DIABETES MELLITUS
     Dosage: 60 U DAY
  2. HUMULIN R [Suspect]
     Indication: DIABETES MELLITUS
     Dosage: 24 U DAY
  3. HUMULIN 70/30 [Suspect]
     Indication: DIABETES MELLITUS

REACTIONS (4)
  - BLINDNESS UNILATERAL [None]
  - BLOOD GLUCOSE INCREASED [None]
  - DIARRHOEA [None]
  - PHARMACEUTICAL PRODUCT COMPLAINT [None]
